FAERS Safety Report 18751932 (Version 1)
Quarter: 2021Q1

REPORT INFORMATION
  Report Type: Spontaneous
  Country: US (occurrence: BR)
  Receive Date: 20210118
  Receipt Date: 20210118
  Transmission Date: 20210419
  Serious: Yes (Hospitalization)
  Sender: FDA-Public Use
  Company Number: BR-FRESENIUS KABI-FK202100492

PATIENT
  Age: 3 Year
  Sex: Female
  Weight: 14 kg

DRUGS (2)
  1. SEVOFLURANE. [Suspect]
     Active Substance: SEVOFLURANE
     Indication: GENERAL ANAESTHESIA
     Route: 065
  2. PROPOFOL (MANUFACTURER UNKNOWN) [Suspect]
     Active Substance: PROPOFOL
     Indication: GENERAL ANAESTHESIA
     Dosage: UNK
     Route: 065

REACTIONS (1)
  - Cardiogenic shock [Recovered/Resolved]
